FAERS Safety Report 25665438 (Version 2)
Quarter: 2025Q3

REPORT INFORMATION
  Report Type: Spontaneous
  Country: US (occurrence: US)
  Receive Date: 20250811
  Receipt Date: 20250903
  Transmission Date: 20251020
  Serious: Yes (Other)
  Sender: BRISTOL-MYERS SQUIBB COMPANY
  Company Number: US-BRISTOL-MYERS SQUIBB COMPANY-2025-110587

PATIENT
  Age: 64 Year
  Sex: Male

DRUGS (1)
  1. LENALIDOMIDE [Suspect]
     Active Substance: LENALIDOMIDE
     Indication: Stem cell transplant
     Dosage: TAKE 1 CAPSULE BY MOUTH DAILY FOR 7 DAYS ON THEN 7 DAYS OFF REPEAT CYCLE
     Route: 048

REACTIONS (8)
  - Therapy interrupted [Unknown]
  - Mycobacterium avium complex infection [Unknown]
  - Dyspnoea [Unknown]
  - Somnolence [Unknown]
  - Lymphadenopathy [Unknown]
  - Off label use [Unknown]
  - Product availability issue [Unknown]
  - Squamous cell carcinoma of skin [Not Recovered/Not Resolved]

NARRATIVE: CASE EVENT DATE: 20250101
